FAERS Safety Report 4558183-9 (Version None)
Quarter: 2005Q1

REPORT INFORMATION
  Report Type: 
  Country: None (occurrence: None)
  Receive Date: 20050103
  Receipt Date: 20041027
  Transmission Date: 20050727
  Serious: Yes (Other)
  Sender: FDA-Public Use
  Company Number: 2004UW20419

PATIENT
  Age: 60 Year
  Sex: Male
  Weight: 181.8924 kg

DRUGS (4)
  1. CRESTOR [Suspect]
     Indication: HYPERCHOLESTEROLAEMIA
     Dosage: 10 MG QD PO
     Route: 048
     Dates: start: 20040114
  2. HYDROCHLOROTHIAZIDE [Concomitant]
  3. HYZAAR [Concomitant]
  4. ASPIRIN [Concomitant]

REACTIONS (1)
  - WEIGHT INCREASED [None]
